FAERS Safety Report 24707466 (Version 1)
Quarter: 2024Q4

REPORT INFORMATION
  Report Type: Spontaneous
  Country: NL (occurrence: NL)
  Receive Date: 20241206
  Receipt Date: 20241206
  Transmission Date: 20250115
  Serious: Yes (Life-Threatening)
  Sender: TEVA
  Company Number: None

PATIENT
  Age: 38 Year
  Sex: Male
  Weight: 84.4 kg

DRUGS (3)
  1. CLOZAPINE [Interacting]
     Active Substance: CLOZAPINE
     Indication: Schizoaffective disorder
     Dosage: 1X PER DAY 2X 25MG, BRAND NAME NOT SPECIFIED
     Route: 048
     Dates: start: 20211118, end: 20241105
  2. CLOZAPINE [Interacting]
     Active Substance: CLOZAPINE
     Indication: Schizoaffective disorder
     Dosage: 1X PER DAY 3X 200 MG, BRAND NAME NOT SPECIFIED
     Route: 048
     Dates: start: 20211118, end: 20241105
  3. FLUVOXAMINE MALEATE [Interacting]
     Active Substance: FLUVOXAMINE MALEATE
     Indication: Product used for unknown indication
     Dosage: FLUVOXAMINE HYDROGEN MALEATE / BRAND NAME NOT SPECIFIED
     Route: 065

REACTIONS (1)
  - Hyperthermia [Unknown]
